FAERS Safety Report 17153609 (Version 12)
Quarter: 2020Q3

REPORT INFORMATION
  Report Type: Report from Study
  Country: CA (occurrence: CA)
  Receive Date: 20191213
  Receipt Date: 20200903
  Transmission Date: 20201102
  Serious: Yes (Hospitalization)
  Sender: FDA-Public Use
  Company Number: CA-EISAI MEDICAL RESEARCH-EC-2019-067096

PATIENT
  Age: 68 Year
  Sex: Female
  Weight: 40.5 kg

DRUGS (19)
  1. LENVATINIB [Suspect]
     Active Substance: LENVATINIB
     Indication: ENDOMETRIAL CANCER
     Dosage: STARTING DOSE: 20 MILLIGRAM; FLUCTUATED DOSE
     Route: 048
     Dates: start: 20191022, end: 20191207
  2. ACETAMINOPHEN. [Concomitant]
     Active Substance: ACETAMINOPHEN
     Dates: start: 201909
  3. ACETAMINOPHEN. [Concomitant]
     Active Substance: ACETAMINOPHEN
     Dates: start: 20191114
  4. FAMOTIDINE. [Concomitant]
     Active Substance: FAMOTIDINE
     Dates: start: 20191103
  5. NASONEX [Concomitant]
     Active Substance: MOMETASONE FUROATE
     Dates: start: 200810
  6. PROCHLORPERAZINE. [Concomitant]
     Active Substance: PROCHLORPERAZINE
     Dates: start: 20191114, end: 20191126
  7. PEMBROLIZUMAB. [Suspect]
     Active Substance: PEMBROLIZUMAB
     Route: 041
     Dates: start: 20191112, end: 20191112
  8. PEMBROLIZUMAB. [Suspect]
     Active Substance: PEMBROLIZUMAB
     Indication: ENDOMETRIAL CANCER
     Route: 041
     Dates: start: 20191022, end: 20191022
  9. PREDNISONE. [Concomitant]
     Active Substance: PREDNISONE
     Dates: start: 20191203, end: 20191208
  10. APO SALVENT [Concomitant]
     Active Substance: ALBUTEROL
     Dates: start: 200810
  11. ZOVIRAX [Concomitant]
     Active Substance: ACYCLOVIR
     Dates: start: 20180201
  12. PANTOLOC [Concomitant]
     Active Substance: PANTOPRAZOLE SODIUM
     Dates: start: 20191202
  13. D TABS [Concomitant]
     Active Substance: CHOLECALCIFEROL
     Dates: start: 201907, end: 20191212
  14. MCAL [Concomitant]
     Dates: end: 20191212
  15. SPIRIVA [Concomitant]
     Active Substance: TIOTROPIUM BROMIDE MONOHYDRATE
     Dates: start: 201810
  16. PROCHLORPERAZINE. [Concomitant]
     Active Substance: PROCHLORPERAZINE
     Dates: start: 20191117, end: 20191126
  17. ZYPREXA [Concomitant]
     Active Substance: OLANZAPINE
     Dates: start: 20191126
  18. LENVATINIB [Suspect]
     Active Substance: LENVATINIB
     Route: 048
     Dates: start: 20191208, end: 20191208
  19. ADVAIR HFA [Concomitant]
     Active Substance: FLUTICASONE PROPIONATE\SALMETEROL XINAFOATE
     Dates: start: 200810

REACTIONS (1)
  - Drug-induced liver injury [Recovered/Resolved]

NARRATIVE: CASE EVENT DATE: 20191209
